FAERS Safety Report 9520691 (Version 2)
Quarter: 2013Q3

REPORT INFORMATION
  Report Type: Spontaneous
  Country: JP (occurrence: JP)
  Receive Date: 20130913
  Receipt Date: 20130913
  Transmission Date: 20140515
  Serious: Yes (Other)
  Sender: FDA-Public Use
  Company Number: JP-BRISTOL-MYERS SQUIBB COMPANY-19195510

PATIENT
  Age: 24 Year
  Sex: Female

DRUGS (2)
  1. ABILIFY TABS [Suspect]
     Indication: BRIEF PSYCHOTIC DISORDER, WITH POSTPARTUM ONSET
     Route: 048
     Dates: start: 20130131, end: 20130717
  2. ABILIFY DISCMELT TABS [Suspect]
     Indication: BRIEF PSYCHOTIC DISORDER, WITH POSTPARTUM ONSET
     Dosage: 18-31JUL2013(14 DAYS)?01AUG13-ONG(3MG/DAY):3MG,QD,ORAL.
     Route: 048
     Dates: start: 20130718

REACTIONS (2)
  - Abortion induced [Unknown]
  - Pregnancy [Recovered/Resolved]
